FAERS Safety Report 16388163 (Version 3)
Quarter: 2019Q3

REPORT INFORMATION
  Report Type: Spontaneous
  Country: US (occurrence: US)
  Receive Date: 20190604
  Receipt Date: 20190916
  Transmission Date: 20191004
  Serious: No
  Sender: FDA-Public Use
  Company Number: US-PFIZER INC-2019237550

PATIENT
  Age: 68 Year

DRUGS (1)
  1. CHANTIX [Suspect]
     Active Substance: VARENICLINE TARTRATE
     Dosage: UNK, 2X/DAY(60, 2 A DAY, 1 IN THE MORNING, AND 1 AT NIGHT)

REACTIONS (1)
  - Chronic obstructive pulmonary disease [Unknown]
